FAERS Safety Report 4631377-X (Version None)
Quarter: 2005Q2

REPORT INFORMATION
  Report Type: 
  Country: None (occurrence: None)
  Receive Date: 20050407
  Receipt Date: 20050401
  Transmission Date: 20051028
  Serious: Yes (Life-Threatening, Hospitalization)
  Sender: FDA-Public Use
  Company Number: 2005-BP-05414RO

PATIENT
  Age: 12 Week
  Sex: Female
  Weight: 4 kg

DRUGS (3)
  1. DIGOXIN [Suspect]
     Indication: VENTRICULAR SEPTAL DEFECT
     Dosage: 125 MCG BID (DOSING ERROR)
  2. CAPTOPRIL [Concomitant]
  3. LASIX (LASIX) [Concomitant]

REACTIONS (21)
  - APNOEA [None]
  - BLOOD BICARBONATE DECREASED [None]
  - BLOOD GLUCOSE INCREASED [None]
  - BLOOD PH DECREASED [None]
  - BUNDLE BRANCH BLOCK RIGHT [None]
  - CARDIAC ARREST [None]
  - COMA [None]
  - CYANOSIS [None]
  - EXTRASYSTOLES [None]
  - HYPOTENSION [None]
  - HYPOTONIA [None]
  - MEDICATION ERROR [None]
  - NODAL RHYTHM [None]
  - PCO2 DECREASED [None]
  - PULSE ABSENT [None]
  - SINUS BRADYCARDIA [None]
  - THERAPEUTIC AGENT TOXICITY [None]
  - VENTRICULAR ARRHYTHMIA [None]
  - VENTRICULAR EXTRASYSTOLES [None]
  - VENTRICULAR TACHYCARDIA [None]
  - WHITE BLOOD CELL COUNT INCREASED [None]
